FAERS Safety Report 21264851 (Version 6)
Quarter: 2025Q2

REPORT INFORMATION
  Report Type: Report from Study
  Country: US (occurrence: US)
  Receive Date: 20220829
  Receipt Date: 20250415
  Transmission Date: 20250717
  Serious: Yes (Other)
  Sender: TAKEDA
  Company Number: US-SHIRE-US202022082

PATIENT
  Age: 64 Year
  Sex: Female

DRUGS (2)
  1. HUMAN IMMUNOGLOBULIN G [Suspect]
     Active Substance: HUMAN IMMUNOGLOBULIN G
     Indication: Immunodeficiency common variable
     Dosage: 25 GRAM, Q2WEEKS
  2. HUMAN IMMUNOGLOBULIN G [Suspect]
     Active Substance: HUMAN IMMUNOGLOBULIN G
     Indication: Primary immunodeficiency syndrome

REACTIONS (6)
  - Cataract [Unknown]
  - Miliaria [Unknown]
  - Arthralgia [Unknown]
  - COVID-19 [Recovering/Resolving]
  - Arthritis [Unknown]
  - Influenza [Unknown]

NARRATIVE: CASE EVENT DATE: 20210601
